FAERS Safety Report 5074486-6 (Version None)
Quarter: 2006Q3

REPORT INFORMATION
  Report Type: 
  Country: None (occurrence: None)
  Receive Date: 20060714
  Receipt Date: 20060322
  Transmission Date: 20061208
  Serious: No
  Sender: FDA-Public Use
  Company Number: 2006SP001350

PATIENT
  Age: 17 Year
  Sex: Male
  Weight: 68.9467 kg

DRUGS (5)
  1. LUNESTA [Suspect]
     Indication: SLEEP DISORDER
     Dosage: 3 MG;HS;ORAL
     Route: 048
     Dates: start: 20060222, end: 20060307
  2. CLONIDINE [Concomitant]
  3. SEROQUEL [Concomitant]
  4. CONCERTA [Concomitant]
  5. WELLBUTRIN [Concomitant]

REACTIONS (2)
  - DEPRESSION [None]
  - SUICIDAL IDEATION [None]
